FAERS Safety Report 8184191-5 (Version None)
Quarter: 2012Q1

REPORT INFORMATION
  Report Type: 
  Country: None (occurrence: None)
  Receive Date: 20120305
  Receipt Date: 20111212
  Transmission Date: 20120608
  Serious: Yes (Hospitalization)
  Sender: FDA-Public Use
  Company Number: BR-ROCHE-1044910

PATIENT
  Sex: Male

DRUGS (2)
  1. XOLAIR [Suspect]
     Indication: PRODUCT USED FOR UNKNOWN INDICATION
  2. ALENIA (BRAZIL) [Concomitant]

REACTIONS (1)
  - ASTHMA [None]
